FAERS Safety Report 7726619-8 (Version None)
Quarter: 2011Q3

REPORT INFORMATION
  Report Type: 
  Country: None (occurrence: None)
  Receive Date: 20110831
  Receipt Date: 20110810
  Transmission Date: 20111222
  Serious: Yes (Death, Hospitalization)
  Sender: FDA-Public Use
  Company Number: ABR_00230_2011

PATIENT
  Age: 58 Year
  Sex: Female

DRUGS (12)
  1. SALMETEROL (SALMETEROL) [Suspect]
     Indication: DIFFUSE PANBRONCHIOLITIS
     Dosage: DF
     Dates: start: 20080901
  2. AZITHROMYCIN [Suspect]
     Indication: DIFFUSE PANBRONCHIOLITIS
     Dates: start: 20080101
  3. ST COMPOUND [Suspect]
     Indication: PRODUCT USED FOR UNKNOWN INDICATION
     Dosage: DF ORAL
     Route: 048
  4. CARBAPENEMS (CARBAPENEM) [Suspect]
     Indication: PRODUCT USED FOR UNKNOWN INDICATION
     Dosage: DF
  5. CLARITHROMYCIN [Suspect]
     Indication: DIFFUSE PANBRONCHIOLITIS
     Dosage: 200 MG
     Dates: start: 20061001
  6. TOBRAMYCIN [Suspect]
     Indication: PRODUCT USED FOR UNKNOWN INDICATION
     Dosage: DF
  7. PIPERACILLIN AND TAZOBACTAM [Suspect]
     Indication: DIFFUSE PANBRONCHIOLITIS
     Dosage: DF
  8. CORTICOSTEROIDS (STEROIDS) [Suspect]
     Indication: PRODUCT USED FOR UNKNOWN INDICATION
     Dosage: DF
  9. ERYTHROMYCIN [Suspect]
     Indication: DIFFUSE PANBRONCHIOLITIS
     Dosage: 400 MG
     Dates: start: 20051201, end: 20061001
  10. MOXIFLOXACIN HCL [Suspect]
     Indication: DIFFUSE PANBRONCHIOLITIS
     Dates: start: 20080101
  11. TIOTROPIUM (TIOTROPIUM) [Suspect]
     Indication: DIFFUSE PANBRONCHIOLITIS
     Dosage: DF
     Dates: start: 20080901
  12. AMINOGLUCOSIDE ANTIBACTERIALS (AMINOGLYCOSIDE) [Suspect]
     Indication: PRODUCT USED FOR UNKNOWN INDICATION
     Dosage: DF

REACTIONS (2)
  - NO THERAPEUTIC RESPONSE [None]
  - PNEUMONIA [None]
